FAERS Safety Report 6501132-4 (Version None)
Quarter: 2009Q4

REPORT INFORMATION
  Report Type: 
  Country: None (occurrence: None)
  Receive Date: 20091216
  Receipt Date: 20090804
  Transmission Date: 20100525
  Serious: No
  Sender: FDA-Public Use
  Company Number: A0800331A

PATIENT
  Age: 54 Year
  Sex: Female

DRUGS (1)
  1. COMMIT [Suspect]
     Dates: start: 20090801, end: 20090802

REACTIONS (3)
  - DIARRHOEA [None]
  - OROPHARYNGEAL PAIN [None]
  - THROAT IRRITATION [None]
